FAERS Safety Report 13136158 (Version 1)
Quarter: 2017Q1

REPORT INFORMATION
  Report Type: Spontaneous
  Country: US (occurrence: US)
  Receive Date: 20170121
  Receipt Date: 20170121
  Transmission Date: 20170428
  Serious: Yes (Other)
  Sender: FDA-Public Use
  Company Number: US-ACCORD-047549

PATIENT
  Age: 13 Year
  Sex: Female

DRUGS (7)
  1. BUSULFAN. [Suspect]
     Active Substance: BUSULFAN
     Indication: EWING^S SARCOMA METASTATIC
  2. DACTINOMYCIN [Suspect]
     Active Substance: DACTINOMYCIN
     Indication: EWING^S SARCOMA METASTATIC
  3. DOXORUBICIN [Suspect]
     Active Substance: DOXORUBICIN
     Indication: EWING^S SARCOMA METASTATIC
  4. IFOSFAMIDE. [Suspect]
     Active Substance: IFOSFAMIDE
     Indication: EWING^S SARCOMA METASTATIC
     Dosage: VIDE
  5. ETOPOSIDE. [Suspect]
     Active Substance: ETOPOSIDE
     Indication: EWING^S SARCOMA METASTATIC
  6. MELPHALAN [Suspect]
     Active Substance: MELPHALAN
     Indication: EWING^S SARCOMA METASTATIC
  7. VINCRISTINE [Suspect]
     Active Substance: VINCRISTINE
     Indication: EWING^S SARCOMA METASTATIC
     Dosage: VIDE

REACTIONS (7)
  - Exfoliative rash [Unknown]
  - Thrombocytopenia [Not Recovered/Not Resolved]
  - Venoocclusive disease [Recovered/Resolved]
  - Neutropenia [Not Recovered/Not Resolved]
  - Off label use [Unknown]
  - Bone marrow failure [Unknown]
  - Infection [Unknown]
